FAERS Safety Report 23024709 (Version 1)
Quarter: 2023Q4

REPORT INFORMATION
  Report Type: Spontaneous
  Country: US (occurrence: None)
  Receive Date: 20231004
  Receipt Date: 20231004
  Transmission Date: 20240110
  Serious: No
  Sender: FDA-Public Use
  Company Number: 2023A219766

PATIENT

DRUGS (5)
  1. CRESTOR [Suspect]
     Active Substance: ROSUVASTATIN CALCIUM
     Route: 048
  2. LIPITOR [Suspect]
     Active Substance: ATORVASTATIN CALCIUM
  3. GABAPENTIN [Suspect]
     Active Substance: GABAPENTIN
  4. SPIRONOLACTONE [Suspect]
     Active Substance: SPIRONOLACTONE
  5. PRAVACHOL [Suspect]
     Active Substance: PRAVASTATIN SODIUM

REACTIONS (4)
  - Bone pain [Unknown]
  - Mobility decreased [Unknown]
  - Hypersensitivity [Unknown]
  - Asthenia [Unknown]

NARRATIVE: CASE EVENT DATE: 20210325
